FAERS Safety Report 8480428-3 (Version None)
Quarter: 2012Q3

REPORT INFORMATION
  Report Type: 
  Country: None (occurrence: None)
  Receive Date: 20120702
  Receipt Date: 20120625
  Transmission Date: 20120928
  Serious: Yes (Hospitalization, Other)
  Sender: FDA-Public Use
  Company Number: US-BIOGENIDEC-2012BI009687

PATIENT
  Age: 69 Year
  Sex: Male
  Weight: 109 kg

DRUGS (14)
  1. ATORVASTATIN [Concomitant]
     Route: 048
  2. METHYLPHENIDATE [Concomitant]
     Indication: FATIGUE
     Route: 048
  3. NIACIN [Concomitant]
     Route: 048
  4. BACLOFEN [Concomitant]
     Indication: MUSCLE SPASTICITY
     Route: 048
  5. PIOGLITAZONE [Concomitant]
     Route: 048
  6. FLAXSEED OIL [Concomitant]
  7. LISINOPRIL [Concomitant]
     Route: 048
  8. TYSABRI [Suspect]
     Indication: MULTIPLE SCLEROSIS
     Route: 042
     Dates: start: 20070219, end: 20120224
  9. ASPIRIN [Concomitant]
     Route: 048
  10. GLYBURIDE [Concomitant]
     Route: 048
  11. GLYBURIDE [Concomitant]
     Route: 048
  12. AMPYRA [Concomitant]
     Indication: GAIT DISTURBANCE
     Dates: start: 20110701, end: 20120502
  13. VENLAFAXINE [Concomitant]
     Route: 048
  14. METHYLPHENIDATE [Concomitant]
     Indication: HYPERSOMNIA
     Route: 048

REACTIONS (6)
  - IMMUNE RECONSTITUTION SYNDROME [None]
  - CONVULSION [None]
  - PROGRESSIVE MULTIFOCAL LEUKOENCEPHALOPATHY [None]
  - HERPES ZOSTER [None]
  - MULTIPLE SCLEROSIS [None]
  - GAIT DISTURBANCE [None]
